FAERS Safety Report 9189207 (Version 1)
Quarter: 2013Q1

REPORT INFORMATION
  Report Type: Spontaneous
  Country: DE (occurrence: None)
  Receive Date: 20130322
  Receipt Date: 20130322
  Transmission Date: 20140127
  Serious: Yes (Death)
  Sender: FDA-Public Use
  Company Number: SYM-2013-01776

PATIENT
  Sex: 0

DRUGS (4)
  1. FLUOROURACIL [Suspect]
     Indication: GASTROOESOPHAGEAL CANCER
  2. OXALIPLATIN [Suspect]
     Indication: GASTROOESOPHAGEAL CANCER
  3. FOLINIC ACID [Suspect]
     Indication: GASTROOESOPHAGEAL CANCER
  4. DOCETAXEL [Suspect]
     Indication: GASTROOESOPHAGEAL CANCER

REACTIONS (1)
  - Sepsis [None]
